FAERS Safety Report 8762171 (Version 1)
Quarter: 2012Q4

REPORT INFORMATION
  Report Type: 
  Country: US (occurrence: US)
  Receive Date: 20120830
  Receipt Date: 20120830
  Transmission Date: 20130627
  Serious: No
  Sender: FDA-Public Use
  Company Number: US-B.I. PHARMACEUTICALS,INC./RIDGEFIELD-2012-BP-21082BP

PATIENT
  Age: 78 Year
  Sex: Male

DRUGS (1)
  1. TRADJENTA [Suspect]
     Dosage: 5 mg
     Dates: start: 20120619, end: 20120719

REACTIONS (4)
  - Gastric disorder [Unknown]
  - Hyperhidrosis [Unknown]
  - Dizziness [Unknown]
  - Tremor [Unknown]
